FAERS Safety Report 6194308-X (Version None)
Quarter: 2009Q2

REPORT INFORMATION
  Report Type: 
  Country: None (occurrence: None)
  Receive Date: 20090519
  Receipt Date: 20090515
  Transmission Date: 20091009
  Serious: Yes (Death, Hospitalization)
  Sender: FDA-Public Use
  Company Number: BR-BRISTOL-MYERS SQUIBB COMPANY-14627293

PATIENT
  Age: 41 Year
  Sex: Male
  Weight: 90 kg

DRUGS (4)
  1. ATAZANAVIR SULFATE [Suspect]
     Route: 048
     Dates: start: 20080306
  2. MARAVIROC [Suspect]
     Route: 048
     Dates: start: 20080306
  3. KALETRA [Suspect]
     Route: 048
     Dates: start: 20080306
  4. PRESSAT [Concomitant]
     Route: 048
     Dates: start: 20070701

REACTIONS (2)
  - DYSPNOEA [None]
  - EMBOLISM [None]
